FAERS Safety Report 12729195 (Version 1)
Quarter: 2016Q3

REPORT INFORMATION
  Report Type: Spontaneous
  Country: None (occurrence: US)
  Receive Date: 20160909
  Receipt Date: 20160909
  Transmission Date: 20161109
  Serious: Yes (Other)
  Sender: FDA-Public Use
  Company Number: US-TEVA-690055USA

PATIENT
  Sex: Female

DRUGS (1)
  1. COPAXONE [Suspect]
     Active Substance: GLATIRAMER ACETATE
     Dosage: UNKNOWN FORM STRENGTH
     Route: 065

REACTIONS (6)
  - Multiple sclerosis relapse [Unknown]
  - Pain in extremity [Unknown]
  - Dizziness [Unknown]
  - Depression [Unknown]
  - Drug ineffective [Unknown]
  - Hypoaesthesia [Unknown]
